FAERS Safety Report 8821241 (Version 1)
Quarter: 2012Q4

REPORT INFORMATION
  Report Type: 
  Country: GB (occurrence: GB)
  Receive Date: 20121002
  Receipt Date: 20121002
  Transmission Date: 20130627
  Serious: Yes (Other)
  Sender: FDA-Public Use
  Company Number: GB-TEVA-360611ISR

PATIENT
  Sex: Male
  Weight: 107.95 kg

DRUGS (2)
  1. SIMVASTATIN [Suspect]
     Indication: OVERWEIGHT
     Route: 048
     Dates: start: 20120610, end: 20120912
  2. CLOPIDOGREL [Suspect]
     Indication: OVERWEIGHT
     Route: 048
     Dates: start: 20120610, end: 20120912

REACTIONS (3)
  - Erectile dysfunction [Unknown]
  - Tinnitus [Unknown]
  - Neuropathy peripheral [Unknown]
